FAERS Safety Report 8233957-1 (Version None)
Quarter: 2012Q1

REPORT INFORMATION
  Report Type: 
  Country: None (occurrence: None)
  Receive Date: 20120323
  Receipt Date: 20120323
  Transmission Date: 20120608
  Serious: Yes (Hospitalization)
  Sender: FDA-Public Use
  Company Number: None

PATIENT
  Age: 55 Year
  Sex: Male
  Weight: 92.1 kg

DRUGS (1)
  1. LITHIUM CARBONATE [Suspect]
     Indication: BIPOLAR I DISORDER
     Dosage: 900 MG BID PO
     Route: 048
     Dates: start: 20100510, end: 20120308

REACTIONS (4)
  - TREMOR [None]
  - GAIT DISTURBANCE [None]
  - DIARRHOEA [None]
  - TOXICITY TO VARIOUS AGENTS [None]
